FAERS Safety Report 17525465 (Version 15)
Quarter: 2023Q1

REPORT INFORMATION
  Report Type: Other
  Country: CA (occurrence: CA)
  Receive Date: 20200311
  Receipt Date: 20230313
  Transmission Date: 20230418
  Serious: Yes (Life-Threatening, Other)
  Sender: FDA-Public Use
  Company Number: CA-002147023-NVSC2020CA028519

PATIENT
  Age: 47 Year
  Sex: Female

DRUGS (15)
  1. XOLAIR [Suspect]
     Active Substance: OMALIZUMAB
     Indication: Chronic spontaneous urticaria
     Route: 058
     Dates: start: 20200128
  2. XOLAIR [Suspect]
     Active Substance: OMALIZUMAB
     Route: 058
  3. XOLAIR [Suspect]
     Active Substance: OMALIZUMAB
     Route: 058
     Dates: start: 20200129
  4. XOLAIR [Suspect]
     Active Substance: OMALIZUMAB
     Route: 058
     Dates: start: 20191105
  5. XOLAIR [Suspect]
     Active Substance: OMALIZUMAB
     Route: 058
  6. PERCOCET [Concomitant]
     Active Substance: ACETAMINOPHEN\OXYCODONE HYDROCHLORIDE
     Indication: Product used for unknown indication
  7. CETIRIZINE HYDROCHLORIDE [Concomitant]
     Active Substance: CETIRIZINE HYDROCHLORIDE
     Indication: Product used for unknown indication
     Dosage: UNK
     Route: 065
  8. LEVOTHYROXINE [Concomitant]
     Active Substance: LEVOTHYROXINE
     Indication: Product used for unknown indication
     Dosage: UNK
     Route: 065
  9. PRAZOSIN [Concomitant]
     Active Substance: PRAZOSIN
     Indication: Product used for unknown indication
     Dosage: UNK
     Route: 065
  10. CYCLOSPORINE [Concomitant]
     Active Substance: CYCLOSPORINE
     Indication: Product used for unknown indication
     Dosage: UNK
     Route: 065
  11. ZOFRAN [Concomitant]
     Active Substance: ONDANSETRON HYDROCHLORIDE
     Indication: Product used for unknown indication
     Dosage: UNK
     Route: 065
  12. IMOVANE [Concomitant]
     Active Substance: ZOPICLONE
     Indication: Product used for unknown indication
     Route: 065
  13. FAMOTIDINE [Concomitant]
     Active Substance: FAMOTIDINE
     Indication: Product used for unknown indication
     Dosage: 1 DOSAGE FORM, BID
     Route: 065
  14. EPINEPHRINE [Concomitant]
     Active Substance: EPINEPHRINE
     Indication: Product used for unknown indication
     Dosage: 3 DOSAGE FORM, IN THE LAST 2 WEEKS(AUTO INJECTOR )
     Route: 065
  15. KETOTIFEN [Concomitant]
     Active Substance: KETOTIFEN
     Indication: Product used for unknown indication
     Dosage: 1 DOSAGE FORM, BID
     Route: 065

REACTIONS (36)
  - Flushing [Unknown]
  - Rash [Unknown]
  - Anaphylactic reaction [Recovered/Resolved]
  - Nightmare [Unknown]
  - Hypersensitivity [Unknown]
  - Delirium [Unknown]
  - Immunodeficiency [Unknown]
  - Air embolism [Unknown]
  - Urticaria [Unknown]
  - White coat hypertension [Unknown]
  - Heart rate increased [Unknown]
  - Nausea [Not Recovered/Not Resolved]
  - Malaise [Unknown]
  - Influenza [Unknown]
  - Dyspnoea [Unknown]
  - Rhinorrhoea [Unknown]
  - Chills [Unknown]
  - Bone pain [Unknown]
  - Cough [Unknown]
  - Herpes zoster [Unknown]
  - H1N1 influenza [Unknown]
  - Coronavirus infection [Recovered/Resolved]
  - Dyspepsia [Unknown]
  - Condition aggravated [Unknown]
  - Parosmia [Unknown]
  - Diarrhoea [Unknown]
  - Mastocytosis [Unknown]
  - Food allergy [Unknown]
  - Perfume sensitivity [Unknown]
  - Feeling hot [Unknown]
  - Blister [Unknown]
  - Decreased appetite [Unknown]
  - Product availability issue [Unknown]
  - Pyrexia [Unknown]
  - Myalgia [Unknown]
  - Nasopharyngitis [Unknown]

NARRATIVE: CASE EVENT DATE: 20200128
